FAERS Safety Report 12167049 (Version 2)
Quarter: 2016Q2

REPORT INFORMATION
  Report Type: Spontaneous
  Country: US (occurrence: US)
  Receive Date: 20160310
  Receipt Date: 20160405
  Transmission Date: 20160815
  Serious: No
  Sender: FDA-Public Use
  Company Number: US-AMGEN-USASP2016027037

PATIENT
  Age: 58 Year
  Sex: Female
  Weight: 81.63 kg

DRUGS (3)
  1. ENBREL [Suspect]
     Active Substance: ETANERCEPT
     Indication: RHEUMATOID ARTHRITIS
     Dosage: 50 MG, EVERY SEVEN DAYS
     Route: 058
     Dates: start: 201602, end: 201603
  2. CYMBALTA [Concomitant]
     Active Substance: DULOXETINE HYDROCHLORIDE
     Dosage: UNK
  3. SYNTHROID [Concomitant]
     Active Substance: LEVOTHYROXINE SODIUM
     Dosage: UNK

REACTIONS (11)
  - Injection site pruritus [Recovering/Resolving]
  - Urticaria [Recovering/Resolving]
  - Inflammation [Recovering/Resolving]
  - Eye swelling [Recovering/Resolving]
  - Dry skin [Recovering/Resolving]
  - Erythema [Recovered/Resolved]
  - Rash [Recovering/Resolving]
  - Skin exfoliation [Recovering/Resolving]
  - Oral herpes [Unknown]
  - Injection site reaction [Recovering/Resolving]
  - Injection site erythema [Recovering/Resolving]

NARRATIVE: CASE EVENT DATE: 201602
